FAERS Safety Report 13830511 (Version 1)
Quarter: 2017Q3

REPORT INFORMATION
  Report Type: Spontaneous
  Country: US (occurrence: US)
  Receive Date: 20170803
  Receipt Date: 20170803
  Transmission Date: 20171127
  Serious: No
  Sender: FDA-Public Use
  Company Number: US-SA-2017SA113519

PATIENT
  Age: 80 Year
  Sex: Male

DRUGS (7)
  1. ALIROCUMAB PREFILLED PEN [Concomitant]
     Active Substance: ALIROCUMAB
     Indication: BLOOD CHOLESTEROL
     Dates: start: 20170607, end: 20170621
  2. LISINOPRIL. [Concomitant]
     Active Substance: LISINOPRIL
     Indication: BLOOD PRESSURE MEASUREMENT
     Route: 065
  3. PRALUENT [Suspect]
     Active Substance: ALIROCUMAB
     Indication: BLOOD CHOLESTEROL
     Route: 058
     Dates: start: 20170607, end: 20170621
  4. ALIROCUMAB PREFILLED PEN [Concomitant]
     Active Substance: ALIROCUMAB
     Indication: TYPE V HYPERLIPIDAEMIA
     Dates: start: 20170607, end: 20170621
  5. FLOMAX [Concomitant]
     Active Substance: TAMSULOSIN HYDROCHLORIDE
     Indication: BLOOD PRESSURE MEASUREMENT
     Route: 065
  6. PRALUENT [Suspect]
     Active Substance: ALIROCUMAB
     Indication: TYPE V HYPERLIPIDAEMIA
     Route: 058
     Dates: start: 20170607, end: 20170621
  7. NIFEDIPINE. [Concomitant]
     Active Substance: NIFEDIPINE
     Indication: BLOOD PRESSURE MEASUREMENT
     Route: 065

REACTIONS (7)
  - Vomiting [Recovered/Resolved]
  - Hypotension [Unknown]
  - Nausea [Recovered/Resolved]
  - Hypersensitivity [Recovered/Resolved]
  - Dizziness [Unknown]
  - Dysphagia [Unknown]
  - Influenza [Recovered/Resolved]

NARRATIVE: CASE EVENT DATE: 2017
